FAERS Safety Report 20246842 (Version 1)
Quarter: 2021Q4

REPORT INFORMATION
  Report Type: Spontaneous
  Country: US (occurrence: None)
  Receive Date: 20211228
  Receipt Date: 20211228
  Transmission Date: 20220303
  Serious: Yes (Other)
  Sender: FDA-Public Use
  Company Number: None

PATIENT
  Age: 10 Year
  Sex: Female
  Weight: 34.47 kg

DRUGS (1)
  1. INFLECTRA [Suspect]
     Active Substance: INFLIXIMAB-DYYB
     Indication: Crohn^s disease
     Dosage: OTHER FREQUENCY : EVERY 8 WEEKS;?
     Route: 041
     Dates: start: 20210222, end: 20211119

REACTIONS (6)
  - Nausea [None]
  - Dyspnoea [None]
  - Chest discomfort [None]
  - Skin discolouration [None]
  - Vomiting [None]
  - Somnolence [None]

NARRATIVE: CASE EVENT DATE: 20211119
